FAERS Safety Report 7621104-6 (Version None)
Quarter: 2011Q3

REPORT INFORMATION
  Report Type: 
  Country: None (occurrence: None)
  Receive Date: 20110719
  Receipt Date: 20110217
  Transmission Date: 20111222
  Serious: No
  Sender: FDA-Public Use
  Company Number: US-KINGPHARMUSA00001-K201100191

PATIENT
  Age: 65 Year
  Sex: Female
  Weight: 56.689 kg

DRUGS (1)
  1. LEVOXYL [Suspect]
     Indication: HYPOTHYROIDISM
     Dosage: 75 MCG, QD
     Route: 048
     Dates: start: 20070101

REACTIONS (5)
  - DRUG INEFFECTIVE [None]
  - DRY SKIN [None]
  - NAUSEA [None]
  - WEIGHT INCREASED [None]
  - SOMNOLENCE [None]
